FAERS Safety Report 17030013 (Version 4)
Quarter: 2019Q4

REPORT INFORMATION
  Report Type: Spontaneous
  Country: GB (occurrence: GB)
  Receive Date: 20191114
  Receipt Date: 20191206
  Transmission Date: 20200122
  Serious: Yes (Hospitalization, Other)
  Sender: FDA-Public Use
  Company Number: GB-MYLANLABS-2019M1108745

PATIENT
  Age: 41 Year
  Sex: Male

DRUGS (2)
  1. LITHIUM. [Suspect]
     Active Substance: LITHIUM
     Indication: IMMUNISATION
     Dosage: UNK
     Dates: end: 20190501
  2. CLOZARIL [Suspect]
     Active Substance: CLOZAPINE
     Indication: SCHIZOPHRENIA
     Dosage: UNK
     Route: 048
     Dates: start: 20110207

REACTIONS (5)
  - Thyroid disorder [Unknown]
  - White blood cell count decreased [Recovered/Resolved]
  - Schizophrenia [Not Recovered/Not Resolved]
  - Malaise [Unknown]
  - Neutrophil count increased [Unknown]

NARRATIVE: CASE EVENT DATE: 20191110
